FAERS Safety Report 18941462 (Version 12)
Quarter: 2021Q4

REPORT INFORMATION
  Report Type: Report from Study
  Country: GB (occurrence: GB)
  Receive Date: 20210225
  Receipt Date: 20211201
  Transmission Date: 20220303
  Serious: Yes (Hospitalization, Other)
  Sender: FDA-Public Use
  Company Number: GB-TAKEDA-2021TUS009776

PATIENT
  Age: 71 Year
  Sex: Male
  Weight: 83 kg

DRUGS (53)
  1. ANTIHEMOPHILIC FACTOR PORCINE, B-DOMAIN TRUNCATED RECOMBINANT [Suspect]
     Active Substance: ANTIHEMOPHILIC FACTOR PORCINE, B-DOMAIN TRUNCATED RECOMBINANT
     Indication: Factor VIII deficiency
     Dosage: 74 INTERNATIONAL UNIT/KILOGRAM
     Route: 042
     Dates: start: 20190807, end: 20190807
  2. ANTIHEMOPHILIC FACTOR PORCINE, B-DOMAIN TRUNCATED RECOMBINANT [Suspect]
     Active Substance: ANTIHEMOPHILIC FACTOR PORCINE, B-DOMAIN TRUNCATED RECOMBINANT
     Indication: Factor VIII deficiency
     Dosage: 74 INTERNATIONAL UNIT/KILOGRAM
     Route: 042
     Dates: start: 20190807, end: 20190807
  3. ANTIHEMOPHILIC FACTOR PORCINE, B-DOMAIN TRUNCATED RECOMBINANT [Suspect]
     Active Substance: ANTIHEMOPHILIC FACTOR PORCINE, B-DOMAIN TRUNCATED RECOMBINANT
     Dosage: 98 INTERNATIONAL UNIT/KILOGRAM
     Route: 042
     Dates: start: 20190808, end: 20190808
  4. ANTIHEMOPHILIC FACTOR PORCINE, B-DOMAIN TRUNCATED RECOMBINANT [Suspect]
     Active Substance: ANTIHEMOPHILIC FACTOR PORCINE, B-DOMAIN TRUNCATED RECOMBINANT
     Dosage: 98 INTERNATIONAL UNIT/KILOGRAM
     Route: 042
     Dates: start: 20190808, end: 20190808
  5. ANTIHEMOPHILIC FACTOR PORCINE, B-DOMAIN TRUNCATED RECOMBINANT [Suspect]
     Active Substance: ANTIHEMOPHILIC FACTOR PORCINE, B-DOMAIN TRUNCATED RECOMBINANT
     Dosage: 36 INTERNATIONAL UNIT/KILOGRAM
     Route: 042
     Dates: start: 20190808, end: 20190808
  6. ANTIHEMOPHILIC FACTOR PORCINE, B-DOMAIN TRUNCATED RECOMBINANT [Suspect]
     Active Substance: ANTIHEMOPHILIC FACTOR PORCINE, B-DOMAIN TRUNCATED RECOMBINANT
     Dosage: 36 INTERNATIONAL UNIT/KILOGRAM
     Route: 042
     Dates: start: 20190808, end: 20190808
  7. ALENDRONIC ACID [Concomitant]
     Active Substance: ALENDRONIC ACID
     Dosage: 70 MILLIGRAM, 1/WEEK
     Route: 048
     Dates: start: 201908
  8. AMLODIPINE [Concomitant]
     Active Substance: AMLODIPINE BESYLATE
     Indication: Blood pressure increased
     Dosage: 10 MILLIGRAM, QD
     Route: 048
     Dates: start: 20190809
  9. AMLODIPINE [Concomitant]
     Active Substance: AMLODIPINE BESYLATE
     Indication: Hypertension
     Dosage: 5 MILLIGRAM, QD
     Route: 048
     Dates: start: 20190809
  10. ATORVASTATIN [Concomitant]
     Active Substance: ATORVASTATIN
     Indication: Blood cholesterol increased
     Dosage: UNK
     Route: 065
     Dates: start: 20190807
  11. ATORVASTATIN [Concomitant]
     Active Substance: ATORVASTATIN
     Dosage: 20 MILLIGRAM, QD
     Route: 048
  12. CALCEOS [Concomitant]
     Active Substance: CALCIUM CARBONATE\CHOLECALCIFEROL
     Indication: Electrolyte imbalance
     Dosage: UNK
     Dates: start: 20190807
  13. CALCEOS [Concomitant]
     Active Substance: CALCIUM CARBONATE\CHOLECALCIFEROL
     Dosage: 500 MILLIGRAM, BID
     Route: 048
     Dates: start: 20190819
  14. OMEPRAZOLE [Concomitant]
     Active Substance: OMEPRAZOLE
     Dosage: UNK
     Route: 065
     Dates: start: 20190807
  15. OMEPRAZOLE [Concomitant]
     Active Substance: OMEPRAZOLE
     Dosage: 20 MILLIGRAM, QD
     Route: 048
  16. PREDNISOLONE [Concomitant]
     Active Substance: PREDNISOLONE
     Indication: Factor VIII inhibition
     Dosage: 80 MILLIGRAM, QD
     Route: 048
     Dates: start: 20190807, end: 20191202
  17. PREDNISOLONE [Concomitant]
     Active Substance: PREDNISOLONE
     Dosage: 10 MILLIGRAM, QD
     Route: 048
     Dates: start: 20191206
  18. TRANEXAMIC ACID [Concomitant]
     Active Substance: TRANEXAMIC ACID
     Indication: Haemorrhage
     Dosage: 1000 MILLIGRAM, QD
     Route: 048
     Dates: start: 20190826, end: 20191108
  19. TRANEXAMIC ACID [Concomitant]
     Active Substance: TRANEXAMIC ACID
     Dosage: 1000 MILLIGRAM, QD
     Route: 048
     Dates: start: 20191020, end: 20191020
  20. TRANEXAMIC ACID [Concomitant]
     Active Substance: TRANEXAMIC ACID
     Dosage: 1 GRAM, TID
     Route: 048
     Dates: start: 20190806
  21. COTRIMOXAZOLE [Concomitant]
     Active Substance: SULFAMETHOXAZOLE\TRIMETHOPRIM
     Indication: Prophylaxis
     Dosage: 480 MILLIGRAM, 3/WEEK
     Route: 048
     Dates: start: 20191218, end: 20200311
  22. COTRIMOXAZOLE [Concomitant]
     Active Substance: SULFAMETHOXAZOLE\TRIMETHOPRIM
     Dosage: 480 MILLIGRAM, QD
     Route: 048
     Dates: start: 20191023, end: 20191112
  23. CETIRIZINE HYDROCHLORIDE [Concomitant]
     Active Substance: CETIRIZINE HYDROCHLORIDE
     Indication: Seasonal allergy
     Dosage: 10 MILLIGRAM, QD
     Route: 048
     Dates: start: 20190807
  24. METHYLPREDNISOLONE [Concomitant]
     Active Substance: METHYLPREDNISOLONE
     Indication: Rheumatoid arthritis
     Dosage: 100 MILLIGRAM
     Route: 042
     Dates: start: 20191231, end: 20191231
  25. METHYLPREDNISOLONE [Concomitant]
     Active Substance: METHYLPREDNISOLONE
     Dosage: 100 MILLIGRAM
     Route: 042
     Dates: start: 20191217, end: 20191217
  26. RITUXIMAB [Concomitant]
     Active Substance: RITUXIMAB
     Indication: Rheumatoid arthritis
     Dosage: 1000 MILLIGRAM
     Route: 042
     Dates: start: 20191231, end: 20191231
  27. RITUXIMAB [Concomitant]
     Active Substance: RITUXIMAB
     Dosage: 1000 MILLIGRAM, QD
     Route: 042
     Dates: start: 20191217, end: 20191217
  28. SULFASALAZINE [Concomitant]
     Active Substance: SULFASALAZINE
     Indication: Rheumatoid arthritis
     Dosage: 1000 MILLIGRAM, BID
     Route: 048
     Dates: start: 20191227
  29. SULFASALAZINE [Concomitant]
     Active Substance: SULFASALAZINE
     Dosage: 750 MILLIGRAM, BID
     Route: 048
     Dates: start: 20191220, end: 20191226
  30. SULFASALAZINE [Concomitant]
     Active Substance: SULFASALAZINE
     Dosage: 1000 MILLIGRAM, QD
     Route: 048
     Dates: start: 20191213
  31. SULFASALAZINE [Concomitant]
     Active Substance: SULFASALAZINE
     Dosage: 500 MILLIGRAM, QD
     Route: 048
     Dates: start: 20191206, end: 20191212
  32. DALTEPARIN [Concomitant]
     Active Substance: DALTEPARIN
     Indication: Prophylaxis
     Dosage: 5000 INTERNATIONAL UNIT, QD
     Route: 058
     Dates: start: 20200207, end: 20200211
  33. DALTEPARIN [Concomitant]
     Active Substance: DALTEPARIN
     Dosage: 5000 INTERNATIONAL UNIT, QD
     Route: 058
     Dates: start: 20191021, end: 20191107
  34. AMOXICILLIN\CLAVULANATE POTASSIUM [Concomitant]
     Active Substance: AMOXICILLIN\CLAVULANATE POTASSIUM
     Indication: Pneumonia
     Dosage: UNK UNK, TID
     Route: 048
     Dates: start: 20200212, end: 20200219
  35. AMOXICILLIN\CLAVULANATE POTASSIUM [Concomitant]
     Active Substance: AMOXICILLIN\CLAVULANATE POTASSIUM
     Dosage: 1200 MILLIGRAM, TID
     Route: 042
     Dates: start: 20200207, end: 20200212
  36. FLUCONAZOLE [Concomitant]
     Active Substance: FLUCONAZOLE
     Indication: Atypical pneumonia
     Dosage: 100 MILLIGRAM, QD
     Route: 048
     Dates: start: 20200204, end: 20200211
  37. DOXYCYCLINE [Concomitant]
     Active Substance: DOXYCYCLINE
     Indication: Lower respiratory tract infection
     Dosage: 100 MILLIGRAM, BID
     Route: 048
     Dates: start: 20200203, end: 20200207
  38. CEFTRIAXONE [Concomitant]
     Active Substance: CEFTRIAXONE
     Indication: Pneumonia
     Dosage: 2000 MILLIGRAM, QD
     Route: 042
     Dates: start: 20200203, end: 20200204
  39. CEFTRIAXONE [Concomitant]
     Active Substance: CEFTRIAXONE
     Indication: Listeriosis
     Dosage: 2000 MILLIGRAM, BID
     Route: 042
     Dates: start: 20191019, end: 20191020
  40. Sando K [Concomitant]
     Indication: Electrolyte imbalance
     Dosage: 1000 MILLIGRAM, TID
     Route: 048
     Dates: start: 20191025, end: 20191027
  41. Sando K [Concomitant]
     Dosage: 2 DOSAGE FORM, TID
     Route: 048
     Dates: start: 20190812, end: 20191027
  42. ACETAMINOPHEN [Concomitant]
     Active Substance: ACETAMINOPHEN
     Indication: Analgesic therapy
     Dosage: 1000 MILLIGRAM
     Route: 048
     Dates: start: 20191018, end: 20191018
  43. ACETAMINOPHEN [Concomitant]
     Active Substance: ACETAMINOPHEN
     Dosage: 1000 MILLIGRAM, PRN
     Route: 048
     Dates: start: 20190807, end: 20190821
  44. ACETAMINOPHEN [Concomitant]
     Active Substance: ACETAMINOPHEN
     Dosage: 1000 MILLIGRAM
     Route: 048
     Dates: start: 20191019
  45. NYSTATIN [Concomitant]
     Active Substance: NYSTATIN
     Indication: Oral candidiasis
     Dosage: 1333.3 INTERNATIONAL UNIT/KILOGRAM, QID
     Route: 048
     Dates: start: 20191106, end: 20191113
  46. GENTAMICIN [Concomitant]
     Active Substance: GENTAMICIN
     Indication: Listeria sepsis
     Dosage: 260 MILLIGRAM, QD
     Route: 042
     Dates: start: 20191021, end: 20191021
  47. GENTAMICIN [Concomitant]
     Active Substance: GENTAMICIN
     Dosage: 320 MILLIGRAM
     Route: 042
     Dates: start: 20191019, end: 20191019
  48. AMOXICILLIN [Concomitant]
     Active Substance: AMOXICILLIN
     Indication: Listeriosis
     Dosage: 2000 MILLIGRAM
     Route: 042
     Dates: start: 20191021, end: 20191108
  49. AMOXICILLIN [Concomitant]
     Active Substance: AMOXICILLIN
     Dosage: 1000 MILLIGRAM, QID
     Route: 042
     Dates: start: 20191019, end: 20191020
  50. CALCIUM CHLORIDE\POTASSIUM CHLORIDE\SODIUM CHLORIDE\SODIUM LACTATE [Concomitant]
     Active Substance: CALCIUM CHLORIDE\POTASSIUM CHLORIDE\SODIUM CHLORIDE\SODIUM LACTATE
     Indication: Fluid replacement
     Dosage: 500 MILLILITER, QD
     Route: 042
     Dates: start: 20191018, end: 20191018
  51. PIPERACILLIN AND TAZOBACTAM [Concomitant]
     Active Substance: PIPERACILLIN SODIUM\TAZOBACTAM SODIUM
     Indication: Sepsis
     Dosage: 4.5 GRAM, BID
     Route: 042
     Dates: start: 20191018, end: 20191018
  52. FERROUS FUMARATE [Concomitant]
     Active Substance: FERROUS FUMARATE
     Indication: Haemoglobin decreased
     Dosage: 210 MILLIGRAM, QD
     Route: 048
     Dates: start: 20190809
  53. SODIUM CHLORIDE [Concomitant]
     Active Substance: SODIUM CHLORIDE
     Indication: Electrolyte imbalance
     Dosage: 500 MILLILITER, PRN
     Route: 042
     Dates: start: 20190807, end: 20190807

REACTIONS (7)
  - Listeraemia [Recovered/Resolved]
  - Haemorrhage [Recovered/Resolved]
  - Lower respiratory tract infection [Recovered/Resolved]
  - Antibody test positive [Recovered/Resolved]
  - Hypoaesthesia [Unknown]
  - Swelling face [Unknown]
  - Paraesthesia [Unknown]

NARRATIVE: CASE EVENT DATE: 20190807
